FAERS Safety Report 19294521 (Version 1)
Quarter: 2021Q2

REPORT INFORMATION
  Report Type: Spontaneous
  Country: US (occurrence: US)
  Receive Date: 20210524
  Receipt Date: 20210524
  Transmission Date: 20210717
  Serious: No
  Sender: FDA-Public Use
  Company Number: US-SA-2021SA166905

PATIENT
  Age: 61 Year
  Sex: Male

DRUGS (21)
  1. EPINEPHRINE. [Concomitant]
     Active Substance: EPINEPHRINE
  2. ROSUVASTATIN. [Concomitant]
     Active Substance: ROSUVASTATIN
  3. ALBUTEROL [SALBUTAMOL] [Concomitant]
     Active Substance: ALBUTEROL
  4. ALFUZOSIN [Concomitant]
     Active Substance: ALFUZOSIN
  5. ASPIRIN. [Concomitant]
     Active Substance: ASPIRIN
  6. AZELASTIN [AZELASTINE] [Concomitant]
  7. FLUTICASONE. [Concomitant]
     Active Substance: FLUTICASONE
  8. VITAMIN D3 [Concomitant]
     Active Substance: CHOLECALCIFEROL
  9. FAMOTIDINE. [Concomitant]
     Active Substance: FAMOTIDINE
  10. BREO ELLIPTA [Concomitant]
     Active Substance: FLUTICASONE FUROATE\VILANTEROL TRIFENATATE
  11. MONTELUKAST [Concomitant]
     Active Substance: MONTELUKAST SODIUM
  12. SPIRIVA [Concomitant]
     Active Substance: TIOTROPIUM BROMIDE MONOHYDRATE
  13. NIACIN. [Concomitant]
     Active Substance: NIACIN
  14. VENTOLIN HFA [Concomitant]
     Active Substance: ALBUTEROL SULFATE
  15. FOLIC ACID. [Concomitant]
     Active Substance: FOLIC ACID
  16. AZITHROMYCIN ANHYDROUS. [Concomitant]
     Active Substance: AZITHROMYCIN ANHYDROUS
  17. DAPSONE. [Concomitant]
     Active Substance: DAPSONE
  18. MUPIROCIN. [Concomitant]
     Active Substance: MUPIROCIN
  19. PREDNISONE. [Concomitant]
     Active Substance: PREDNISONE
  20. DUPIXENT [Suspect]
     Active Substance: DUPILUMAB
     Indication: ASTHMA
     Dosage: 300 MG, QOW
     Route: 058
     Dates: start: 20200605
  21. LEVALBUTEROL [LEVOSALBUTAMOL] [Concomitant]
     Active Substance: LEVALBUTEROL

REACTIONS (2)
  - Product use issue [Unknown]
  - Rash [Not Recovered/Not Resolved]

NARRATIVE: CASE EVENT DATE: 20200605
